FAERS Safety Report 7682305 (Version 4)
Quarter: 2013Q3

REPORT INFORMATION
  Report Type: Spontaneous
  Country: US (occurrence: US)
  Receive Date: 20101124
  Receipt Date: 20130924
  Transmission Date: 20140515
  Serious: Yes (Hospitalization, Other)
  Sender: FDA-Public Use
  Company Number: US-ROCHE-722633

PATIENT
  Age: 15 Year
  Sex: Male
  Weight: 63.5 kg

DRUGS (4)
  1. ACCUTANE [Suspect]
     Indication: ACNE
     Route: 065
     Dates: start: 198801, end: 199806
  2. ACCUTANE [Suspect]
     Route: 065
     Dates: start: 200003, end: 200008
  3. ZYRTEC [Concomitant]
  4. CLARITIN [Concomitant]

REACTIONS (8)
  - Colitis ulcerative [Unknown]
  - Rectal abscess [Unknown]
  - Crohn^s disease [Unknown]
  - Gastrointestinal injury [Unknown]
  - Inflammatory bowel disease [Unknown]
  - Suicidal ideation [Unknown]
  - Intestinal haemorrhage [Unknown]
  - Hepatic enzyme increased [Unknown]
